FAERS Safety Report 5890961-6 (Version None)
Quarter: 2008Q3

REPORT INFORMATION
  Report Type: 
  Country: None (occurrence: None)
  Receive Date: 20080922
  Receipt Date: 20080912
  Transmission Date: 20090109
  Serious: Yes (Death, Hospitalization)
  Sender: FDA-Public Use
  Company Number: A0748431A

PATIENT
  Age: 57 Year
  Sex: Male
  Weight: 75 kg

DRUGS (14)
  1. AVANDIA [Suspect]
     Indication: TYPE 2 DIABETES MELLITUS
     Dosage: 4MG TWICE PER DAY
     Route: 048
     Dates: start: 20030101, end: 20060420
  2. AVANDAMET [Suspect]
     Indication: TYPE 2 DIABETES MELLITUS
     Route: 048
     Dates: end: 20060420
  3. METFORMIN HCL [Concomitant]
     Dosage: 500MG UNKNOWN
     Route: 048
     Dates: start: 20010101, end: 20060420
  4. SYNTHROID [Concomitant]
  5. LISINOPRIL [Concomitant]
  6. DIGITEK [Concomitant]
  7. FUROSEMIDE [Concomitant]
  8. DOXYCYCLINE [Concomitant]
  9. ZETIA [Concomitant]
  10. SPIRONOLACTONE [Concomitant]
  11. ZOCOR [Concomitant]
     Dates: start: 19990101, end: 20060420
  12. ZOLOFT [Concomitant]
     Dates: start: 19990101, end: 20060420
  13. COREG [Concomitant]
     Dates: start: 20040101, end: 20060420
  14. GLYBURIDE [Concomitant]
     Dates: start: 20000101, end: 20060420

REACTIONS (6)
  - CARDIAC DISORDER [None]
  - CARDIAC FAILURE CONGESTIVE [None]
  - CONCOMITANT DISEASE PROGRESSION [None]
  - FATIGUE [None]
  - QUALITY OF LIFE DECREASED [None]
  - SOMNOLENCE [None]
